FAERS Safety Report 7088702-2 (Version None)
Quarter: 2010Q4

REPORT INFORMATION
  Report Type: 
  Country: None (occurrence: None)
  Receive Date: 20101108
  Receipt Date: 20101028
  Transmission Date: 20110411
  Serious: Yes (Death, Hospitalization)
  Sender: FDA-Public Use
  Company Number: TW-BAYER-201027208GPV

PATIENT
  Age: 57 Year
  Sex: Male
  Weight: 54 kg

DRUGS (46)
  1. SORAFENIB [Suspect]
     Indication: HEPATIC NEOPLASM MALIGNANT
     Dosage: TOTAL DAILY DOSE: 800 MG  UNIT DOSE: 200 MG
     Route: 048
     Dates: start: 20100420, end: 20100531
  2. ERLOTINIB OR PLACEBO [Suspect]
     Indication: HEPATIC NEOPLASM MALIGNANT
     Route: 048
     Dates: start: 20100420, end: 20100506
  3. ERLOTINIB OR PLACEBO [Suspect]
     Route: 048
     Dates: start: 20100507, end: 20100531
  4. TARCEVA [Concomitant]
  5. FENTANYL CITRATE [Concomitant]
     Indication: ABDOMINAL PAIN
     Dosage: 25MCG/H
     Route: 062
     Dates: start: 20100513, end: 20100519
  6. FENTANYL CITRATE [Concomitant]
  7. FENTANYL CITRATE [Concomitant]
     Dates: start: 20100524, end: 20100604
  8. SILYMARIN [Concomitant]
     Indication: VIRAL INFECTION
     Dosage: TOTAL DAILY DOSE: 210 MG
     Dates: start: 20100520
  9. FARLUTAL [Concomitant]
     Indication: DECREASED APPETITE
     Dosage: TOTAL DAILY DOSE: 1000 MG
     Dates: start: 20100426, end: 20100505
  10. FARLUTAL [Concomitant]
     Dates: start: 20100506, end: 20100531
  11. FARLUTAL [Concomitant]
     Dates: start: 20100601, end: 20100603
  12. PRIMPERAN [Concomitant]
     Indication: DECREASED APPETITE
     Dosage: TOTAL DAILY DOSE: 11.52 MG
     Dates: start: 20100419, end: 20100505
  13. PRIMPERAN [Concomitant]
     Dosage: TOTAL DAILY DOSE: 7.68 MG
     Dates: start: 20100506, end: 20100531
  14. PRIMPERAN [Concomitant]
     Dates: start: 20100601, end: 20100627
  15. NORVASC [Concomitant]
     Indication: HYPERTENSION
     Dosage: TOTAL DAILY DOSE: 10 MG
     Dates: start: 20100412, end: 20100412
  16. NORVASC [Concomitant]
     Dates: start: 20100513, end: 20100531
  17. HERBAL MEDICATION [Concomitant]
     Dosage: ONCE/WEEK FOR 10-20YEARS
  18. HERBAL PRODUCTS [Concomitant]
     Dosage: FOR 10-20 YEARS
  19. BETEL NUT [Concomitant]
  20. FUROSEMIDE [Concomitant]
     Indication: ASCITES
     Dates: start: 20100601
  21. SULFCARBAMIDE [Concomitant]
     Indication: HEPATIC FUNCTION ABNORMAL
     Dosage: AS USED: 500/50 MG
  22. MAGNESIUM OXIDE [Concomitant]
     Indication: HYPERCHLORHYDRIA
     Dosage: TOTAL DAILY DOSE: 750 MG
     Dates: start: 20100604, end: 20100614
  23. MAGNESIUM OXIDE [Concomitant]
     Dates: start: 20100501, end: 20100501
  24. MAGNESIUM OXIDE [Concomitant]
     Dates: start: 20100615, end: 20100627
  25. MST CONTINOUS [Concomitant]
  26. LORAZEPAM [Concomitant]
  27. MYCOSTATIN [Concomitant]
     Indication: STOMATITIS
     Route: 048
  28. MYCOSTATIN [Concomitant]
     Dates: start: 20100520, end: 20100524
  29. MORPHINE [Concomitant]
     Indication: ABDOMINAL PAIN
     Dates: start: 20100531, end: 20100531
  30. MORPHINE [Concomitant]
     Dates: start: 20100524, end: 20100526
  31. MORPHINE [Concomitant]
     Dates: start: 20100513, end: 20100523
  32. MORPHINE [Concomitant]
     Dosage: TOTAL DAILY DOSE: 10 MG
     Dates: start: 20100419, end: 20100502
  33. BISACODYL [Concomitant]
     Indication: CONSTIPATION
     Dates: start: 20100615, end: 20100627
  34. TRAMADOL HCL [Concomitant]
     Indication: ABDOMINAL PAIN
     Dates: start: 20100408, end: 20100418
  35. TRAMADOL HCL [Concomitant]
     Dates: start: 20100419, end: 20100519
  36. MEDICON A [Concomitant]
     Indication: COUGH
     Route: 048
     Dates: start: 20100506, end: 20100526
  37. MEDICON A [Concomitant]
     Route: 048
     Dates: start: 20100419, end: 20100505
  38. ZINC OXIDE [Concomitant]
     Indication: RASH
     Route: 061
     Dates: start: 20100503, end: 20100513
  39. KENALOG [Concomitant]
     Indication: STOMATITIS
     Dates: start: 20100520, end: 20100620
  40. FLOMOXEF [Concomitant]
     Indication: ABDOMINAL INFECTION
     Dates: start: 20100531, end: 20100531
  41. CEFUROXIME [Concomitant]
     Indication: ABDOMINAL INFECTION
     Dates: start: 20100601, end: 20100604
  42. CEFUROXIME [Concomitant]
     Dates: start: 20100531, end: 20100531
  43. SPASMO-EUVERIL [Concomitant]
     Indication: DYSURIA
     Dates: start: 20100604, end: 20100627
  44. LACTULOSE [Concomitant]
     Indication: CONSTIPATION
     Dates: start: 20100604, end: 20100604
  45. LACTULOSE [Concomitant]
     Dates: start: 20100627, end: 20100627
  46. ATIVAN [Concomitant]
     Indication: INSOMNIA
     Dates: start: 20100609, end: 20100627

REACTIONS (9)
  - ASCITES [None]
  - DIZZINESS [None]
  - DYSURIA [None]
  - HEPATIC FAILURE [None]
  - HEPATIC FUNCTION ABNORMAL [None]
  - INSOMNIA [None]
  - LIVER CARCINOMA RUPTURED [None]
  - OEDEMA [None]
  - WEIGHT DECREASED [None]
